FAERS Safety Report 4666630-7 (Version None)
Quarter: 2005Q2

REPORT INFORMATION
  Report Type: 
  Country: None (occurrence: None)
  Receive Date: 20050518
  Receipt Date: 20050506
  Transmission Date: 20051028
  Serious: Yes (Hospitalization, Other)
  Sender: FDA-Public Use
  Company Number: KII-2005-0016475

PATIENT
  Age: 37 Year
  Sex: Female

DRUGS (5)
  1. MORPHINE SULFATE [Suspect]
     Dosage: ORAL
     Route: 048
  2. CARBON MONOXIDE [Suspect]
     Dosage: INHALATION
     Route: 055
  3. PHENCYCLIDINE (PHENCYCLIDINE) [Suspect]
  4. TETRAHYDROCANNABINOL (TETRAHYDROCANNABINOL) [Suspect]
  5. METAMFETAMINE (METAMFETAMINE) [Suspect]

REACTIONS (10)
  - AGGRESSION [None]
  - BLOOD CREATINE PHOSPHOKINASE INCREASED [None]
  - DEPRESSED LEVEL OF CONSCIOUSNESS [None]
  - DRUG SCREEN POSITIVE [None]
  - HEART RATE INCREASED [None]
  - INTENTIONAL MISUSE [None]
  - MULTIPLE DRUG OVERDOSE [None]
  - OLIGURIA [None]
  - POLYSUBSTANCE ABUSE [None]
  - SUICIDE ATTEMPT [None]
